FAERS Safety Report 9798500 (Version 2)
Quarter: 2014Q1

REPORT INFORMATION
  Report Type: Report from Study
  Country: FR (occurrence: FR)
  Receive Date: 20140106
  Receipt Date: 20140106
  Transmission Date: 20141002
  Serious: Yes (Hospitalization)
  Sender: FDA-Public Use
  Company Number: FR-SA-CLOF-1002244

PATIENT
  Age: 74 Year
  Sex: Male
  Weight: 85 kg

DRUGS (5)
  1. CLOFARABINE [Suspect]
     Indication: ACUTE MYELOID LEUKAEMIA
     Dosage: 5 ALTERNATE DAY/ CYCLES
     Route: 042
     Dates: start: 20120723
  2. HYDROCORTISONE [Concomitant]
     Dosage: UNK
     Route: 065
  3. ZOPHREN [Concomitant]
     Indication: NAUSEA
     Dosage: UNK
     Route: 065
  4. ZOPHREN [Concomitant]
     Indication: VOMITING
     Dosage: UNK
     Route: 065
  5. VOGALENE [Concomitant]
     Indication: NAUSEA
     Dosage: UNK
     Route: 065

REACTIONS (1)
  - Febrile bone marrow aplasia [Recovered/Resolved]
